FAERS Safety Report 7249096-2 (Version None)
Quarter: 2011Q1

REPORT INFORMATION
  Report Type: 
  Country: None (occurrence: None)
  Receive Date: 20110128
  Receipt Date: 20101021
  Transmission Date: 20110831
  Serious: Yes (Hospitalization, Other)
  Sender: FDA-Public Use
  Company Number: US-BAYER-201016842NA

PATIENT
  Sex: Female
  Weight: 45.455 kg

DRUGS (12)
  1. FENTANYL [Concomitant]
     Indication: PAIN
     Route: 041
     Dates: start: 20080913, end: 20080914
  2. TYLENOL W/ CODEINE NO. 3 [Concomitant]
     Indication: PAIN
     Route: 048
     Dates: start: 20080915, end: 20080901
  3. MOTRIN [Concomitant]
     Indication: PAIN
     Dosage: 200 MG (DAILY DOSE), , ORAL
     Route: 048
     Dates: start: 20080916, end: 20080901
  4. YASMIN [Suspect]
     Route: 048
  5. FUROSEMIDE [Concomitant]
     Indication: HYPERTENSION
     Dates: end: 20080801
  6. ZOFRAN [Concomitant]
     Dosage: 4 MG (DAILY DOSE), ,
     Dates: start: 20080913, end: 20080916
  7. XANAX [Concomitant]
     Indication: ANXIETY
     Dates: start: 20080913, end: 20080901
  8. ANTIMIGRAINE PREPARATIONS [Concomitant]
     Indication: MIGRAINE
  9. VERSED [Concomitant]
     Dosage: 1 MG (DAILY DOSE), , INTRAVENOUS
     Route: 042
     Dates: start: 20080913, end: 20080901
  10. DILAUDID [Concomitant]
     Indication: PAIN
     Dosage: 1.5 MG (DAILY DOSE), ,
     Dates: start: 20080914, end: 20080901
  11. BENADRYL [Concomitant]
     Dosage: 50 MG (DAILY DOSE), , ORAL
     Route: 048
     Dates: start: 20080914, end: 20080901
  12. YAZ [Suspect]
     Route: 048
     Dates: start: 20071120, end: 20080901

REACTIONS (11)
  - VOMITING [None]
  - HYPOACUSIS [None]
  - CONVULSION [None]
  - CONFUSIONAL STATE [None]
  - TREMOR [None]
  - DEPRESSION [None]
  - BINOCULAR EYE MOVEMENT DISORDER [None]
  - VISUAL IMPAIRMENT [None]
  - CEREBRAL INFARCTION [None]
  - DYSKINESIA [None]
  - CEREBRAL THROMBOSIS [None]
